FAERS Safety Report 9665324 (Version 1)
Quarter: 2013Q4

REPORT INFORMATION
  Report Type: Report from Study
  Country: US (occurrence: US)
  Receive Date: 20131101
  Receipt Date: 20131101
  Transmission Date: 20140711
  Serious: Yes (Death, Other)
  Sender: FDA-Public Use
  Company Number: PHEH2013US022912

PATIENT
  Age: 80 Year
  Sex: Male

DRUGS (1)
  1. TOBI [Suspect]
     Indication: METABOLIC DISORDER
     Dosage: 300 MG, BID
     Dates: start: 20071227

REACTIONS (3)
  - Death [Fatal]
  - Circulatory collapse [Unknown]
  - Dyspnoea [Unknown]
